FAERS Safety Report 7003287-4 (Version None)
Quarter: 2010Q3

REPORT INFORMATION
  Report Type: 
  Country: None (occurrence: None)
  Receive Date: 20100920
  Receipt Date: 20100914
  Transmission Date: 20110219
  Serious: Yes (Death)
  Sender: FDA-Public Use
  Company Number: US-ELI_LILLY_AND_COMPANY-US201009000068

PATIENT
  Sex: Female
  Weight: 46.259 kg

DRUGS (15)
  1. ALIMTA [Suspect]
     Indication: NON-SMALL CELL LUNG CANCER METASTATIC
     Dosage: 500 MG/M2, DAILY (1/D)
     Route: 042
     Dates: start: 20100212
  2. ALOXI [Concomitant]
     Dosage: 50 ML, DAILY (1/D)
     Dates: start: 20100212
  3. ATIVAN [Concomitant]
     Dosage: 0.5 MG, EVERY 8 HRS
     Dates: start: 20100304
  4. COMPAZINE [Concomitant]
     Dosage: 10 MG, AS NEEDED
     Dates: start: 20100205
  5. DEXAMETHASONE [Concomitant]
     Dates: start: 20100212
  6. PERCOCET [Concomitant]
     Dosage: UNK, AS NEEDED
  7. ADVAIR DISKUS 100/50 [Concomitant]
     Dosage: UNK, AS NEEDED
  8. ALBUTEROL [Concomitant]
  9. IBUPROFEN [Concomitant]
  10. PROVENTIL /00139502/ [Concomitant]
  11. XOPENEX [Concomitant]
  12. DECADRON [Concomitant]
     Dosage: 4 MG, 2/D
     Dates: start: 20100205, end: 20100226
  13. DIFLUCAN [Concomitant]
     Dosage: 100 MG, DAILY (1/D)
     Dates: start: 20100304, end: 20100311
  14. FOLIC ACID [Concomitant]
     Dosage: 1 MG, DAILY (1/D)
     Dates: start: 20100114, end: 20100812
  15. VITAMIN B-12 [Concomitant]
     Dosage: 1000 UG, DAILY (1/D)
     Dates: start: 20100114, end: 20100114

REACTIONS (1)
  - MALIGNANT NEOPLASM PROGRESSION [None]
